FAERS Safety Report 8826519 (Version 3)
Quarter: 2016Q1

REPORT INFORMATION
  Report Type: Spontaneous
  Country: US (occurrence: US)
  Receive Date: 20121005
  Receipt Date: 20160105
  Transmission Date: 20160526
  Serious: Yes (Hospitalization)
  Sender: FDA-Public Use
  Company Number: US-COVIDIEN/TYCO HEALTHCARE/MALLINCKRODT-T201203536

PATIENT
  Age: 12 Year
  Sex: Female

DRUGS (1)
  1. EXALGO [Suspect]
     Active Substance: HYDROMORPHONE HYDROCHLORIDE
     Dosage: 12 MG, UNK

REACTIONS (1)
  - Accidental exposure to product [Recovered/Resolved]

NARRATIVE: CASE EVENT DATE: 20120804
